FAERS Safety Report 7309580-X (Version None)
Quarter: 2011Q1

REPORT INFORMATION
  Report Type: 
  Country: None (occurrence: None)
  Receive Date: 20110223
  Receipt Date: 20110214
  Transmission Date: 20110831
  Serious: Yes (Hospitalization, Other)
  Sender: FDA-Public Use
  Company Number: US-ASTRAZENECA-2010SE53669

PATIENT
  Age: 55 Year
  Sex: Male

DRUGS (3)
  1. LORTAB [Concomitant]
  2. SYMBICORT [Suspect]
     Dosage: 160/4.5 UG
     Route: 055
  3. COUMADIN [Concomitant]

REACTIONS (7)
  - POST-TRAUMATIC STRESS DISORDER [None]
  - CARDIAC ABLATION [None]
  - CEREBROVASCULAR ACCIDENT [None]
  - AMNESIA [None]
  - ACCIDENT AT HOME [None]
  - EMBOLISM ARTERIAL [None]
  - TRAUMATIC BRAIN INJURY [None]
